FAERS Safety Report 22814259 (Version 3)
Quarter: 2025Q1

REPORT INFORMATION
  Report Type: Spontaneous
  Country: US (occurrence: US)
  Receive Date: 20230811
  Receipt Date: 20250102
  Transmission Date: 20250408
  Serious: Yes (Hospitalization, Other)
  Sender: SEPTODONT
  Company Number: US-SEPTODONT-2023017917

PATIENT
  Age: 27 Year
  Sex: Female

DRUGS (1)
  1. SEPTOCAINE AND EPINEPHRINE [Suspect]
     Active Substance: ARTICAINE HYDROCHLORIDE\EPINEPHRINE BITARTRATE
     Indication: Endodontic procedure
     Route: 004
     Dates: start: 20230727, end: 20230727

REACTIONS (6)
  - Hypersensitivity [Unknown]
  - Asphyxia [Unknown]
  - Erythema [Unknown]
  - Papule [Unknown]
  - Product formulation issue [Unknown]
  - Maternal exposure during breast feeding [Unknown]

NARRATIVE: CASE EVENT DATE: 20230714
